FAERS Safety Report 10247643 (Version 3)
Quarter: 2014Q2

REPORT INFORMATION
  Report Type: Report from Study
  Country: US (occurrence: US)
  Receive Date: 20140619
  Receipt Date: 20140620
  Transmission Date: 20141212
  Serious: Yes (Death, Hospitalization)
  Sender: FDA-Public Use
  Company Number: US-ACTELION-A-NJ2014-97409

PATIENT
  Age: 67 Year
  Sex: Male

DRUGS (4)
  1. MACITENTAN [Suspect]
     Indication: PULMONARY ARTERIAL HYPERTENSION
     Dosage: 10 MG, QD
     Route: 048
     Dates: start: 20140124
  2. REMODULIN [Concomitant]
  3. WARFARIN [Concomitant]
  4. ADCIRCA [Concomitant]

REACTIONS (2)
  - Death [Fatal]
  - Pulmonary arterial hypertension [Unknown]
